FAERS Safety Report 4673159-9 (Version None)
Quarter: 2005Q2

REPORT INFORMATION
  Report Type: 
  Country: None (occurrence: None)
  Receive Date: 20050524
  Receipt Date: 20050524
  Transmission Date: 20051028
  Serious: Yes (Hospitalization)
  Sender: FDA-Public Use
  Company Number: None

PATIENT
  Age: 12 Year
  Sex: Female

DRUGS (5)
  1. ATOMOXETINE ELI LILLY [Suspect]
     Dates: start: 20040831, end: 20051007
  2. PEPCID [Concomitant]
  3. RHINOCORT [Concomitant]
  4. TAVIST [Concomitant]
  5. MULTI-VITAMIN [Concomitant]

REACTIONS (1)
  - HEPATITIS ACUTE [None]
